FAERS Safety Report 16898393 (Version 2)
Quarter: 2019Q4

REPORT INFORMATION
  Report Type: Spontaneous
  Country: DE (occurrence: DE)
  Receive Date: 20191009
  Receipt Date: 20191021
  Transmission Date: 20200122
  Serious: Yes (Hospitalization, Other)
  Sender: FDA-Public Use
  Company Number: DE-TORRENT-00015643

PATIENT
  Age: 26 Month
  Sex: Female
  Weight: 10 kg

DRUGS (2)
  1. PERENTEROL [Concomitant]
     Active Substance: SACCHAROMYCES CEREVISIAE
     Indication: DIARRHOEA
     Dosage: UNKNOWN
     Route: 048
  2. LACTULOSE. [Suspect]
     Active Substance: LACTULOSE
     Indication: DIARRHOEA
     Route: 048
     Dates: end: 20181004

REACTIONS (4)
  - Subglottic laryngitis [Unknown]
  - Acute respiratory failure [Unknown]
  - Product use in unapproved indication [Unknown]
  - Laryngospasm [Unknown]

NARRATIVE: CASE EVENT DATE: 20181004
